FAERS Safety Report 6176419-8 (Version None)
Quarter: 2009Q2

REPORT INFORMATION
  Report Type: 
  Country: None (occurrence: None)
  Receive Date: 20090501
  Receipt Date: 20090422
  Transmission Date: 20091009
  Serious: Yes (Disabling)
  Sender: FDA-Public Use
  Company Number: US-MERCK-0812USA01747

PATIENT
  Age: 61 Year
  Sex: Female
  Weight: 69 kg

DRUGS (4)
  1. FOSAMAX [Suspect]
     Indication: OSTEOPENIA
     Route: 048
     Dates: start: 20040727, end: 20050112
  2. FOSAMAX [Suspect]
     Route: 048
     Dates: start: 20050112, end: 20050101
  3. FOSAMAX [Suspect]
     Route: 048
     Dates: start: 20010723, end: 20040727
  4. FOSAMAX [Suspect]
     Route: 048
     Dates: start: 20050101

REACTIONS (12)
  - ACROCHORDON [None]
  - APHTHOUS STOMATITIS [None]
  - ARTHRALGIA [None]
  - DEPRESSION [None]
  - FATIGUE [None]
  - HYPERCHOLESTEROLAEMIA [None]
  - JAW DISORDER [None]
  - MALAISE [None]
  - OEDEMA PERIPHERAL [None]
  - OSTEONECROSIS [None]
  - PAIN IN EXTREMITY [None]
  - SLEEP DISORDER [None]
